FAERS Safety Report 13701689 (Version 1)
Quarter: 2017Q2

REPORT INFORMATION
  Report Type: Spontaneous
  Country: US (occurrence: US)
  Receive Date: 20170629
  Receipt Date: 20170629
  Transmission Date: 20170830
  Serious: Yes (Hospitalization)
  Sender: FDA-Public Use
  Company Number: None

PATIENT
  Age: 50 Year
  Sex: Female

DRUGS (1)
  1. BUPIVACAINE. [Suspect]
     Active Substance: BUPIVACAINE
     Indication: PAIN
     Dates: start: 20130627, end: 20130627

REACTIONS (8)
  - Vomiting [None]
  - Vertigo [None]
  - Hypotension [None]
  - Toxicity to various agents [None]
  - Nausea [None]
  - Paraesthesia [None]
  - Dizziness [None]
  - Dysgeusia [None]

NARRATIVE: CASE EVENT DATE: 20130627
